FAERS Safety Report 25615594 (Version 1)
Quarter: 2025Q3

REPORT INFORMATION
  Report Type: Spontaneous
  Country: CA (occurrence: CA)
  Receive Date: 20250729
  Receipt Date: 20250729
  Transmission Date: 20251020
  Serious: Yes (Other)
  Sender: CELLTRION
  Company Number: CA-PFIZER INC-PV202400058896

PATIENT

DRUGS (8)
  1. INFLECTRA [Suspect]
     Active Substance: INFLIXIMAB-DYYB
     Indication: Colitis ulcerative
     Route: 042
     Dates: start: 20220719
  2. INFLECTRA [Suspect]
     Active Substance: INFLIXIMAB-DYYB
  3. INFLECTRA [Suspect]
     Active Substance: INFLIXIMAB-DYYB
  4. INFLECTRA [Suspect]
     Active Substance: INFLIXIMAB-DYYB
  5. INFLECTRA [Suspect]
     Active Substance: INFLIXIMAB-DYYB
     Route: 042
  6. INFLECTRA [Suspect]
     Active Substance: INFLIXIMAB-DYYB
     Route: 042
  7. INFLECTRA [Suspect]
     Active Substance: INFLIXIMAB-DYYB
     Route: 058
  8. INFLECTRA [Suspect]
     Active Substance: INFLIXIMAB-DYYB
     Route: 042

REACTIONS (10)
  - Condition aggravated [Not Recovered/Not Resolved]
  - Drug ineffective [Unknown]
  - Abdominal pain upper [Not Recovered/Not Resolved]
  - Hepatic pain [Not Recovered/Not Resolved]
  - Feeling abnormal [Unknown]
  - Throat irritation [Recovered/Resolved]
  - Weight decreased [Not Recovered/Not Resolved]
  - Influenza [Recovered/Resolved]
  - Off label use [Unknown]
  - Off label use [Unknown]

NARRATIVE: CASE EVENT DATE: 20250220
